FAERS Safety Report 11130878 (Version 1)
Quarter: 2015Q2

REPORT INFORMATION
  Report Type: Report from Study
  Country: NL (occurrence: NL)
  Receive Date: 20150522
  Receipt Date: 20150522
  Transmission Date: 20150821
  Serious: Yes (Other)
  Sender: FDA-Public Use
  Company Number: NL-AMGEN-NLDSL2015048144

PATIENT
  Age: 53 Year
  Sex: Female

DRUGS (5)
  1. ZOPICLON [Concomitant]
     Active Substance: ZOPICLONE
     Dosage: UNK, AS NECESSARY
  2. AFINITOR [Concomitant]
     Active Substance: EVEROLIMUS
     Dosage: UNK
  3. EXEMESTAAN [Concomitant]
     Active Substance: EXEMESTANE
     Dosage: UNK
  4. CALCI CHEW [Concomitant]
     Dosage: UNK
  5. XGEVA [Suspect]
     Active Substance: DENOSUMAB
     Indication: PROPHYLAXIS
     Dosage: 1.7 ML (70MG/ML), Q4WK
     Route: 058
     Dates: start: 20131227

REACTIONS (3)
  - Anal fistula [Unknown]
  - Breast cancer [Unknown]
  - Tumour marker increased [Unknown]

NARRATIVE: CASE EVENT DATE: 20150513
